FAERS Safety Report 20898061 (Version 1)
Quarter: 2022Q2

REPORT INFORMATION
  Report Type: Spontaneous
  Country: US (occurrence: US)
  Receive Date: 20220531
  Receipt Date: 20220531
  Transmission Date: 20220721
  Serious: Yes (Other)
  Sender: FDA-Public Use
  Company Number: US-SA-SAC20220526000664

PATIENT
  Age: 63 Year
  Sex: Male

DRUGS (1)
  1. ZANTAC [Suspect]
     Active Substance: RANITIDINE HYDROCHLORIDE
     Indication: Dyspepsia
     Dosage: UNK, QD
     Route: 065
     Dates: start: 201501, end: 201710

REACTIONS (4)
  - Bladder cancer stage II [Recovered/Resolved]
  - Lung carcinoma cell type unspecified stage IV [Not Recovered/Not Resolved]
  - Tongue neoplasm malignant stage unspecified [Recovered/Resolved]
  - Nasal cavity cancer [Recovered/Resolved]

NARRATIVE: CASE EVENT DATE: 20180117
